FAERS Safety Report 13390439 (Version 6)
Quarter: 2018Q1

REPORT INFORMATION
  Report Type: Spontaneous
  Country: US (occurrence: US)
  Receive Date: 20170331
  Receipt Date: 20180122
  Transmission Date: 20180508
  Serious: No
  Sender: FDA-Public Use
  Company Number: US-PFIZER INC-2017137709

PATIENT
  Age: 60 Year
  Sex: Female

DRUGS (1)
  1. XELJANZ XR [Suspect]
     Active Substance: TOFACITINIB CITRATE
     Dosage: 11 MG, UNK
     Dates: start: 201703

REACTIONS (5)
  - Nausea [Unknown]
  - Vomiting [Unknown]
  - Crying [Unknown]
  - Eye oedema [Unknown]
  - Headache [Unknown]

NARRATIVE: CASE EVENT DATE: 20170328
